FAERS Safety Report 7623701-0 (Version None)
Quarter: 2011Q3

REPORT INFORMATION
  Report Type: 
  Country: None (occurrence: None)
  Receive Date: 20110720
  Receipt Date: 20110630
  Transmission Date: 20111222
  Serious: Yes (Hospitalization)
  Sender: FDA-Public Use
  Company Number: US-GLAXOSMITHKLINE-A0888184A

PATIENT
  Age: 44 Year
  Sex: Male
  Weight: 97.3 kg

DRUGS (5)
  1. GLYBURIDE [Concomitant]
  2. FAMOTIDINE [Concomitant]
  3. PRAVACHOL [Concomitant]
  4. TIAZAC [Concomitant]
  5. AVANDIA [Suspect]
     Indication: TYPE 2 DIABETES MELLITUS
     Dosage: 8MG PER DAY
     Route: 048
     Dates: start: 20011001, end: 20070601

REACTIONS (4)
  - RENAL FAILURE CHRONIC [None]
  - MYOCARDIAL INFARCTION [None]
  - CARDIAC FAILURE CONGESTIVE [None]
  - CARDIAC ARREST [None]
